FAERS Safety Report 17777776 (Version 1)
Quarter: 2020Q2

REPORT INFORMATION
  Report Type: Report from Study
  Country: US (occurrence: US)
  Receive Date: 20200513
  Receipt Date: 20200513
  Transmission Date: 20200714
  Serious: Yes (Other)
  Sender: FDA-Public Use
  Company Number: US-ROCHE-2145906

PATIENT
  Age: 58 Year
  Sex: Female
  Weight: 49.94 kg

DRUGS (5)
  1. TYSABRI [Concomitant]
     Active Substance: NATALIZUMAB
  2. RITUXAN [Suspect]
     Active Substance: RITUXIMAB
     Indication: RELAPSING MULTIPLE SCLEROSIS
     Route: 065
     Dates: start: 201709, end: 201803
  3. REBIF [Concomitant]
     Active Substance: INTERFERON BETA-1A
  4. GILENYA [Concomitant]
     Active Substance: FINGOLIMOD HYDROCHLORIDE
  5. OCREVUS [Suspect]
     Active Substance: OCRELIZUMAB
     Indication: RELAPSING MULTIPLE SCLEROSIS
     Route: 042
     Dates: start: 201809

REACTIONS (20)
  - Off label use [Unknown]
  - Herpes zoster [Unknown]
  - Endometriosis [Recovered/Resolved]
  - Cartilage injury [Unknown]
  - Headache [Unknown]
  - Intentional product use issue [Unknown]
  - Basedow^s disease [Recovered/Resolved]
  - Nerve injury [Not Recovered/Not Resolved]
  - Flushing [Unknown]
  - Multiple sclerosis relapse [Unknown]
  - Drug hypersensitivity [Unknown]
  - Osteoporosis [Unknown]
  - Ill-defined disorder [Unknown]
  - Pruritus [Not Recovered/Not Resolved]
  - Pain [Not Recovered/Not Resolved]
  - Blood pressure increased [Unknown]
  - Autoimmune thyroiditis [Unknown]
  - Multiple sclerosis [Unknown]
  - Tinnitus [Unknown]
  - Rash [Unknown]

NARRATIVE: CASE EVENT DATE: 201801
